FAERS Safety Report 25588284 (Version 1)
Quarter: 2025Q3

REPORT INFORMATION
  Report Type: Spontaneous
  Country: CN (occurrence: CN)
  Receive Date: 20250722
  Receipt Date: 20250722
  Transmission Date: 20251020
  Serious: Yes (Hospitalization)
  Sender: BEIGENE
  Company Number: CN-BEIGENE-BGN-2025-011636

PATIENT
  Age: 57 Year
  Weight: 62 kg

DRUGS (4)
  1. TISLELIZUMAB [Suspect]
     Active Substance: TISLELIZUMAB
     Indication: Nasopharyngeal cancer
     Dosage: 200 MILLIGRAM, Q3WK, D1
  2. CARBOPLATIN [Suspect]
     Active Substance: CARBOPLATIN
     Indication: Nasopharyngeal cancer
     Dosage: 450 MILLIGRAM, Q3WK, D1
  3. GIMERACIL\OTERACIL\TEGAFUR [Suspect]
     Active Substance: GIMERACIL\OTERACIL POTASSIUM\TEGAFUR
     Indication: Nasopharyngeal cancer
     Dosage: 60 MILLIGRAM, BID, D1-14
  4. PACLITAXEL [Suspect]
     Active Substance: PACLITAXEL
     Indication: Nasopharyngeal cancer
     Dosage: 390 MILLIGRAM, Q3WK, D1

REACTIONS (1)
  - Myelosuppression [Recovering/Resolving]
